FAERS Safety Report 6980979-4 (Version None)
Quarter: 2010Q3

REPORT INFORMATION
  Report Type: 
  Country: None (occurrence: None)
  Receive Date: 20100914
  Receipt Date: 20100909
  Transmission Date: 20110219
  Serious: Yes (Hospitalization)
  Sender: FDA-Public Use
  Company Number: A0880961A

PATIENT
  Age: 50 Year
  Sex: Male

DRUGS (4)
  1. LAMICTAL [Suspect]
     Indication: BIPOLAR DISORDER
     Dosage: 400MG PER DAY
     Route: 048
  2. COCAINE [Suspect]
     Indication: PRODUCT USED FOR UNKNOWN INDICATION
     Route: 065
  3. PAROXETINE HCL [Concomitant]
  4. ARIPIPRAZOLE [Concomitant]

REACTIONS (4)
  - ABDOMINAL DISTENSION [None]
  - ENDOSCOPY [None]
  - GASTROINTESTINAL HAEMORRHAGE [None]
  - OVERDOSE [None]
